FAERS Safety Report 14586819 (Version 15)
Quarter: 2023Q1

REPORT INFORMATION
  Report Type: Spontaneous
  Country: US (occurrence: US)
  Receive Date: 20180301
  Receipt Date: 20230315
  Transmission Date: 20230417
  Serious: Yes (Hospitalization, Other)
  Sender: FDA-Public Use
  Company Number: US-PFIZER INC-2018085158

PATIENT
  Age: 58 Year
  Sex: Female
  Weight: 86 kg

DRUGS (8)
  1. PRISTIQ EXTENDED-RELEASE [Suspect]
     Active Substance: DESVENLAFAXINE SUCCINATE
     Indication: Depression
     Dosage: 100 MG, 1X/DAY (IN THE MORNING WITH BREAKFAST)
     Route: 048
     Dates: start: 2010
  2. PRISTIQ EXTENDED-RELEASE [Suspect]
     Active Substance: DESVENLAFAXINE SUCCINATE
     Indication: Anxiety
     Dosage: UNK
  3. PRISTIQ EXTENDED-RELEASE [Suspect]
     Active Substance: DESVENLAFAXINE SUCCINATE
     Dosage: 50 MG
  4. LOSARTAN [Concomitant]
     Active Substance: LOSARTAN
     Indication: Hypertension
     Dosage: 50 MG, 1X/DAY
  5. HYDRALAZINE [Concomitant]
     Active Substance: HYDRALAZINE HYDROCHLORIDE
     Indication: Hypertension
     Dosage: 10 MG, 2X/DAY
  6. METOPROLOL [Concomitant]
     Active Substance: METOPROLOL
     Indication: Hypertension
     Dosage: 25 MG, 1X/DAY
  7. METOPROLOL [Concomitant]
     Active Substance: METOPROLOL
     Dosage: 50 MG, 1X/DAY
  8. PROZAC [Concomitant]
     Active Substance: FLUOXETINE HYDROCHLORIDE
     Dosage: INCREASED DOSE

REACTIONS (26)
  - Cerebrovascular accident [Not Recovered/Not Resolved]
  - Arterial occlusive disease [Not Recovered/Not Resolved]
  - Dyspnoea [Unknown]
  - Intracranial aneurysm [Unknown]
  - Blood lactic acid increased [Unknown]
  - Suicidal ideation [Unknown]
  - Withdrawal syndrome [Recovered/Resolved]
  - Drug dependence [Unknown]
  - Brain injury [Unknown]
  - Bell^s palsy [Unknown]
  - Coronary artery bypass [Unknown]
  - Product dose omission issue [Unknown]
  - Eyelid function disorder [Unknown]
  - Dry eye [Unknown]
  - Illness [Unknown]
  - Feeling abnormal [Unknown]
  - Alcohol use [Unknown]
  - Stress [Unknown]
  - Gait disturbance [Recovering/Resolving]
  - Emotional disorder [Unknown]
  - Crying [Unknown]
  - Herpes zoster [Unknown]
  - Hypoaesthesia [Unknown]
  - Trigeminal neuralgia [Unknown]
  - Nervousness [Unknown]
  - Anxiety [Unknown]

NARRATIVE: CASE EVENT DATE: 20140101
